FAERS Safety Report 7640558-2 (Version None)
Quarter: 2011Q3

REPORT INFORMATION
  Report Type: 
  Country: None (occurrence: None)
  Receive Date: 20110728
  Receipt Date: 20110714
  Transmission Date: 20111222
  Serious: Yes (Hospitalization)
  Sender: FDA-Public Use
  Company Number: US-BIOGENIDEC-2011BI027670

PATIENT
  Age: 45 Year
  Sex: Female

DRUGS (3)
  1. TYSABRI [Suspect]
     Indication: MULTIPLE SCLEROSIS
     Route: 042
     Dates: start: 20080101, end: 20110501
  2. TYSABRI [Suspect]
     Route: 042
     Dates: start: 20050201, end: 20050201
  3. BACLOFEN [Concomitant]
     Indication: MUSCLE SPASTICITY
     Route: 037
     Dates: start: 20060101

REACTIONS (8)
  - TREMOR [None]
  - DYSPHEMIA [None]
  - ASTHENIA [None]
  - AGRAPHIA [None]
  - DYSARTHRIA [None]
  - MUSCLE SPASTICITY [None]
  - MUSCULOSKELETAL STIFFNESS [None]
  - URINARY TRACT INFECTION [None]
